FAERS Safety Report 19241155 (Version 1)
Quarter: 2021Q2

REPORT INFORMATION
  Report Type: Spontaneous
  Country: US (occurrence: US)
  Receive Date: 20210510
  Receipt Date: 20210510
  Transmission Date: 20210717
  Serious: Yes (Other)
  Sender: FDA-Public Use
  Company Number: None

PATIENT
  Age: 62 Year
  Sex: Male

DRUGS (1)
  1. REVLIMID [Suspect]
     Active Substance: LENALIDOMIDE
     Indication: PLASMA CELL MYELOMA
     Route: 048
     Dates: start: 20201231

REACTIONS (4)
  - Accidental overdose [None]
  - Manufacturing product shipping issue [None]
  - Wrong patient received product [None]
  - Product dispensing error [None]

NARRATIVE: CASE EVENT DATE: 20210503
